FAERS Safety Report 6194139-0 (Version None)
Quarter: 2009Q2

REPORT INFORMATION
  Report Type: 
  Country: None (occurrence: None)
  Receive Date: 20090518
  Receipt Date: 20090506
  Transmission Date: 20091009
  Serious: Yes (Hospitalization)
  Sender: FDA-Public Use
  Company Number: MX-GENENTECH-283019

PATIENT
  Sex: Female

DRUGS (1)
  1. HERCEPTIN [Suspect]
     Indication: BREAST CANCER
     Dosage: 440 MG, Q3W
     Route: 042
     Dates: start: 20080601, end: 20090213

REACTIONS (2)
  - CHEST DISCOMFORT [None]
  - TACHYCARDIA [None]
